FAERS Safety Report 17474719 (Version 1)
Quarter: 2020Q1

REPORT INFORMATION
  Report Type: Report from Study
  Country: GB (occurrence: GB)
  Receive Date: 20200228
  Receipt Date: 20200228
  Transmission Date: 20200409
  Serious: Yes (Hospitalization, Other)
  Sender: FDA-Public Use
  Company Number: GB-JNJFOC-20190704337

PATIENT
  Age: 33 Year
  Sex: Female
  Weight: 153 kg

DRUGS (11)
  1. FORCEVAL                           /07405301/ [Concomitant]
     Active Substance: FOLIC ACID\IRON\MINERALS\VITAMINS
     Route: 065
     Dates: start: 20181127
  2. FLUCLOXACILLIN [Concomitant]
     Active Substance: FLUCLOXACILLIN
     Route: 065
     Dates: start: 20190509
  3. REVAXIS [Concomitant]
     Active Substance: DIPHTHERIA AND TETANUS TOXOIDS AND POLIOVIRUS VACCINE ANTIGENS
     Route: 065
     Dates: start: 20190304
  4. MIRTAZAPINE. [Concomitant]
     Active Substance: MIRTAZAPINE
     Route: 065
     Dates: start: 20130206
  5. TRIPTORELIN [Concomitant]
     Active Substance: TRIPTORELIN
     Route: 065
     Dates: start: 20180521
  6. STELARA [Suspect]
     Active Substance: USTEKINUMAB
     Indication: PSORIASIS
     Dosage: PRE-FILLED SYRINGE
     Route: 058
     Dates: start: 20170404
  7. XAMIOL                             /06356901/ [Concomitant]
     Route: 065
     Dates: start: 20180627
  8. FOLIC ACID. [Concomitant]
     Active Substance: FOLIC ACID
     Route: 065
     Dates: start: 20160908
  9. ESTRADIOL. [Concomitant]
     Active Substance: ESTRADIOL
     Route: 065
     Dates: start: 20140525
  10. ZUMENON [Concomitant]
     Active Substance: ESTRADIOL
     Route: 065
     Dates: start: 20190318
  11. VITAMIN D                          /00318501/ [Concomitant]
     Active Substance: CHOLECALCIFEROL
     Route: 065
     Dates: start: 20170201

REACTIONS (2)
  - Pancreatitis [Recovered/Resolved]
  - Cholecystitis acute [Recovered/Resolved]

NARRATIVE: CASE EVENT DATE: 20190423
